FAERS Safety Report 6726161-7 (Version None)
Quarter: 2010Q2

REPORT INFORMATION
  Report Type: 
  Country: None (occurrence: None)
  Receive Date: 20100514
  Receipt Date: 20100513
  Transmission Date: 20101027
  Serious: Yes (Hospitalization)
  Sender: FDA-Public Use
  Company Number: US-B.I. PHARMACEUTICALS,INC./RIDGEFIELD-2009-BP-14356BP

PATIENT
  Sex: Male
  Weight: 97.52 kg

DRUGS (5)
  1. MIRAPEX [Suspect]
     Indication: RESTLESS LEGS SYNDROME
     Route: 048
  2. LEVETIRACETAM [Concomitant]
     Indication: EPILEPSY
     Dosage: 2000 MG
  3. PROAFENONE [Concomitant]
     Indication: ATRIAL FIBRILLATION
     Dosage: 3400 MG
  4. PROVIGAL [Concomitant]
     Indication: NARCOLEPSY
     Dosage: 400 MG
  5. ACETAZOLAMID [Concomitant]
     Indication: GLAUCOMA
     Dosage: 500 MG

REACTIONS (5)
  - COMPULSIVE SHOPPING [None]
  - DEPRESSION [None]
  - EMOTIONAL DISTRESS [None]
  - HYPERSEXUALITY [None]
  - OBSESSIVE-COMPULSIVE DISORDER [None]
